FAERS Safety Report 13965687 (Version 2)
Quarter: 2017Q3

REPORT INFORMATION
  Report Type: Spontaneous
  Country: US (occurrence: US)
  Receive Date: 20170913
  Receipt Date: 20170918
  Transmission Date: 20171128
  Serious: No
  Sender: FDA-Public Use
  Company Number: US-PFIZER INC-2017394653

PATIENT
  Age: 68 Year
  Sex: Female
  Weight: 82 kg

DRUGS (1)
  1. REVATIO [Suspect]
     Active Substance: SILDENAFIL CITRATE
     Indication: PULMONARY HYPERTENSION
     Dosage: 20 MG, 3X/DAY
     Route: 048
     Dates: start: 2010

REACTIONS (4)
  - Condition aggravated [Not Recovered/Not Resolved]
  - Solar lentigo [Not Recovered/Not Resolved]
  - Skin lesion [Not Recovered/Not Resolved]
  - Lentigo [Not Recovered/Not Resolved]

NARRATIVE: CASE EVENT DATE: 2012
